FAERS Safety Report 9080348 (Version 1)
Quarter: 2013Q1

REPORT INFORMATION
  Report Type: Spontaneous
  Country: IN (occurrence: IN)
  Receive Date: 20130218
  Receipt Date: 20130218
  Transmission Date: 20140127
  Serious: Yes (Hospitalization)
  Sender: FDA-Public Use
  Company Number: PHHY2013IN013202

PATIENT
  Age: 13 Year
  Sex: Female

DRUGS (1)
  1. VALPROIC ACID [Suspect]
     Indication: CONVULSION
     Dosage: 1250 MG/DAY (IN TWO DIVIDED DOSES)
     Route: 048

REACTIONS (10)
  - Metabolic acidosis [Recovering/Resolving]
  - Hyperlactacidaemia [Unknown]
  - Hyperammonaemia [Recovering/Resolving]
  - Coma [Recovered/Resolved]
  - Mydriasis [Unknown]
  - Extensor plantar response [Unknown]
  - Depressed level of consciousness [Recovering/Resolving]
  - Neurological decompensation [Not Recovered/Not Resolved]
  - Respiratory depression [Unknown]
  - Convulsion [Unknown]
